FAERS Safety Report 8461320-7 (Version None)
Quarter: 2012Q2

REPORT INFORMATION
  Report Type: 
  Country: None (occurrence: None)
  Receive Date: 20120625
  Receipt Date: 20120613
  Transmission Date: 20120825
  Serious: Yes (Other)
  Sender: FDA-Public Use
  Company Number: CA-JNJFOC-20120607741

PATIENT
  Sex: Female
  Weight: 63.6 kg

DRUGS (7)
  1. REMICADE [Suspect]
     Route: 042
     Dates: start: 20120516
  2. DICLOFENAC SODIUM [Concomitant]
     Route: 065
  3. TEMAZEPAM [Concomitant]
     Route: 065
  4. METHOTREXATE [Concomitant]
     Route: 065
  5. REMICADE [Suspect]
     Dosage: 22ND INFUSION
     Route: 042
     Dates: start: 20120613
  6. REMICADE [Suspect]
     Indication: CROHN'S DISEASE
     Route: 042
     Dates: start: 20091218
  7. ALENDRONATE SODIUM [Concomitant]
     Route: 065

REACTIONS (1)
  - NEPHROLITHIASIS [None]
